FAERS Safety Report 5476863-8 (Version None)
Quarter: 2007Q4

REPORT INFORMATION
  Report Type: 
  Country: None (occurrence: None)
  Receive Date: 20071004
  Receipt Date: 20070921
  Transmission Date: 20080405
  Serious: Yes (Hospitalization)
  Sender: FDA-Public Use
  Company Number: US-AMGEN-US244332

PATIENT
  Sex: Female
  Weight: 79 kg

DRUGS (7)
  1. VECTIBIX [Suspect]
     Indication: COLORECTAL CANCER
     Dates: start: 20070821, end: 20070920
  2. PROPRANOLOL [Concomitant]
     Dates: start: 20060101
  3. GLYBURIDE [Concomitant]
     Route: 065
     Dates: start: 20060101
  4. IRINOTECAN HCL [Concomitant]
     Indication: COLORECTAL CANCER
     Route: 042
     Dates: start: 20070821, end: 20070821
  5. IRINOTECAN HCL [Concomitant]
     Route: 042
     Dates: start: 20070906, end: 20070906
  6. COUMADIN [Concomitant]
     Dates: start: 20060912, end: 20070101
  7. VITAMIN CAP [Concomitant]
     Dates: start: 20060101

REACTIONS (4)
  - ABSCESS [None]
  - CELLULITIS [None]
  - FURUNCLE [None]
  - RASH [None]
